FAERS Safety Report 6612489-8 (Version None)
Quarter: 2010Q1

REPORT INFORMATION
  Report Type: 
  Country: None (occurrence: None)
  Receive Date: 20100303
  Receipt Date: 20100222
  Transmission Date: 20100710
  Serious: Yes (Hospitalization)
  Sender: FDA-Public Use
  Company Number: CZ-ROCHE-675179

PATIENT
  Sex: Female
  Weight: 76 kg

DRUGS (7)
  1. BEVACIZUMAB [Suspect]
     Indication: NON-SMALL CELL LUNG CANCER
     Dosage: FORM: VIAL, LAST DOSE PRIOR TO SAE: 18 NOV 2009, TEMPORARILY INTERRUPTED
     Route: 042
     Dates: start: 20091118, end: 20091118
  2. BEVACIZUMAB [Suspect]
     Route: 042
     Dates: start: 20091221
  3. CARBOPLATIN [Suspect]
     Dosage: FORM: VIAL, LAST DOSE PRIOR TO SAE: 18 NOV 2009, TEMPORARILY INTERRUPTED
     Route: 042
     Dates: start: 20091118, end: 20091118
  4. CARBOPLATIN [Suspect]
     Route: 042
     Dates: start: 20091221
  5. GEMCITABINE HCL [Suspect]
     Dosage: FORM: VIAL, LAST DOSE PRIOR TO SAE: 25 NOV 2009, FREQUENCY: D1+8 Q3W, TEMPORARILY INTERRUPTED
     Route: 042
     Dates: start: 20091118, end: 20091125
  6. GEMCITABINE HCL [Suspect]
     Route: 042
     Dates: start: 20091221
  7. LOZAP [Concomitant]
     Dates: start: 20000101

REACTIONS (2)
  - ASCITES [None]
  - FLUID RETENTION [None]
